FAERS Safety Report 10057244 (Version 2)
Quarter: 2014Q2

REPORT INFORMATION
  Report Type: Report from Study
  Country: JP (occurrence: JP)
  Receive Date: 20140403
  Receipt Date: 20140620
  Transmission Date: 20141212
  Serious: Yes (Hospitalization)
  Sender: FDA-Public Use
  Company Number: JP-PFIZER INC-2014090516

PATIENT
  Age: 56 Year
  Sex: Male
  Weight: 77 kg

DRUGS (13)
  1. UNASYN-S [Suspect]
     Indication: PNEUMONIA
     Dosage: 3 G, 4X/DAY
     Route: 041
     Dates: start: 20140221, end: 20140226
  2. PROPOFOL [Concomitant]
     Indication: ANALGESIC THERAPY
     Dosage: 500 MG, 1X/DAY
     Route: 042
     Dates: start: 20140221
  3. FENTANYL [Concomitant]
     Indication: ANALGESIC THERAPY
     Dosage: 0.5 MG, 1X/DAY
     Route: 042
     Dates: start: 20140221
  4. FOSTOIN [Concomitant]
     Indication: CONVULSION
     Dosage: 750 MG, 1X/DAY
     Route: 042
     Dates: start: 20140223, end: 20140223
  5. LASIX [Concomitant]
     Indication: POLYURIA
     Dosage: 20 MG, 1X/DAY
     Route: 042
     Dates: start: 20140225, end: 20140226
  6. DEPAKENE [Concomitant]
     Indication: EPILEPSY
     Dosage: 1200 MG, 3X/DAY
     Route: 048
  7. E-KEPPRA [Concomitant]
     Indication: EPILEPSY
     Dosage: 1000 MG, 2X/DAY
     Route: 048
  8. ROHYPNOL [Concomitant]
     Indication: INSOMNIA
     Dosage: 1 MG, 1X/DAY
     Route: 048
  9. GASLON [Concomitant]
     Indication: GASTRITIS PROPHYLAXIS
     Dosage: 4 MG, 1X/DAY
     Route: 048
     Dates: start: 20140221
  10. SODIUM PICOSULFATE [Concomitant]
     Indication: CONSTIPATION
     Dosage: UNK
     Route: 048
     Dates: start: 20140221
  11. MIYA BM [Concomitant]
     Indication: CONSTIPATION
     Dosage: 3 G, 3X/DAY
     Route: 048
     Dates: start: 20140222
  12. AZUNOL [Concomitant]
     Indication: DERMATITIS
     Dosage: UNK; 3X/DAY
     Route: 003
     Dates: start: 20140223
  13. ARASENA A [Concomitant]
     Indication: ORAL HERPES
     Dosage: UNK; 1X/DAY
     Route: 003
     Dates: start: 20140225

REACTIONS (1)
  - Pancreatitis [Recovered/Resolved]
